FAERS Safety Report 7958844-5 (Version None)
Quarter: 2011Q4

REPORT INFORMATION
  Report Type: 
  Country: None (occurrence: None)
  Receive Date: 20111206
  Receipt Date: 20111124
  Transmission Date: 20120403
  Serious: Yes (Hospitalization)
  Sender: FDA-Public Use
  Company Number: JP-ELI_LILLY_AND_COMPANY-JP201109002637

PATIENT
  Sex: Female

DRUGS (5)
  1. AMARYL [Concomitant]
     Dosage: 1.5 MG, BID
     Dates: start: 20110215, end: 20110513
  2. BYETTA [Suspect]
     Dosage: 10 UG, BID
     Route: 058
     Dates: start: 20110511, end: 20110815
  3. AMARYL [Concomitant]
     Dosage: 3 MG, BID
     Dates: end: 20110215
  4. BYETTA [Suspect]
     Indication: TYPE 2 DIABETES MELLITUS
     Dosage: 5 UG, BID
     Route: 058
     Dates: start: 20110215, end: 20110511
  5. AMARYL [Concomitant]
     Dosage: 1.5 MG, QD
     Dates: start: 20110513, end: 20110815

REACTIONS (1)
  - CEREBRAL INFARCTION [None]
